FAERS Safety Report 4748204-2 (Version None)
Quarter: 2005Q3

REPORT INFORMATION
  Report Type: 
  Country: None (occurrence: None)
  Receive Date: 20050818
  Receipt Date: 20050811
  Transmission Date: 20060218
  Serious: Yes (Death, Hospitalization)
  Sender: FDA-Public Use
  Company Number: ES-ABBOTT-05P-144-0308148-00

PATIENT
  Age: 38 Year
  Sex: Female

DRUGS (5)
  1. KALETRA [Suspect]
     Indication: HIV INFECTION
     Route: 048
     Dates: start: 20030422, end: 20050811
  2. INTERFERON [Suspect]
     Indication: HEPATITIS C VIRUS
     Route: 065
     Dates: start: 20050717, end: 20050811
  3. RIBAVIRIN [Suspect]
     Indication: HEPATITIS C VIRUS
     Route: 065
     Dates: start: 20050717, end: 20050811
  4. TENOFOVIR [Concomitant]
     Indication: HIV INFECTION
     Route: 048
     Dates: start: 20030422, end: 20050811
  5. DIDANOSINE [Concomitant]
     Indication: HIV INFECTION
     Route: 048
     Dates: start: 20030422, end: 20050707

REACTIONS (5)
  - ANAEMIA [None]
  - DEHYDRATION [None]
  - GASTROENTERITIS [None]
  - METABOLIC DISORDER [None]
  - THROMBOCYTOPENIA [None]
